FAERS Safety Report 6060075-3 (Version None)
Quarter: 2009Q1

REPORT INFORMATION
  Report Type: 
  Country: None (occurrence: None)
  Receive Date: 20090130
  Receipt Date: 20090121
  Transmission Date: 20090719
  Serious: Yes (Other)
  Sender: FDA-Public Use
  Company Number: GB-ELI_LILLY_AND_COMPANY-GB200901003434

PATIENT
  Age: 71 Year
  Sex: Female
  Weight: 53 kg

DRUGS (8)
  1. DULOXETINE HYDROCHLORIDE [Suspect]
     Indication: DEPRESSION
     Dosage: 60 MG, UNKNOWN
     Route: 048
     Dates: start: 20080124, end: 20081222
  2. DULOXETINE HYDROCHLORIDE [Suspect]
     Dosage: UNK, UNKNOWN
     Route: 048
  3. ADCAL-D3 [Concomitant]
     Indication: OSTEOPOROSIS
     Dosage: UNK, 2/D
     Route: 048
  4. ALENDRONIC ACID [Concomitant]
     Indication: OSTEOPOROSIS
     Dosage: 70 MG, WEEKLY (1/W)
     Route: 048
  5. ALVERINE [Concomitant]
     Indication: IRRITABLE BOWEL SYNDROME
     Dosage: 360 MG, DAILY (1/D)
     Route: 048
  6. CANDESARTAN [Concomitant]
     Indication: HYPERTENSION
     Dosage: 8 MG, UNKNOWN
     Route: 048
  7. DONEPEZIL HCL [Concomitant]
     Indication: DEMENTIA ALZHEIMER'S TYPE
     Dosage: 10 MG, UNKNOWN
     Route: 048
  8. ACETAMINOPHEN [Concomitant]
     Indication: OSTEOARTHRITIS
     Dosage: 500 MG, UNKNOWN
     Route: 048

REACTIONS (4)
  - AGGRESSION [None]
  - DEPRESSED MOOD [None]
  - DRUG WITHDRAWAL SYNDROME [None]
  - INTENTIONAL SELF-INJURY [None]
